FAERS Safety Report 14651403 (Version 1)
Quarter: 2018Q1

REPORT INFORMATION
  Report Type: Spontaneous
  Country: US (occurrence: US)
  Receive Date: 20180316
  Receipt Date: 20180316
  Transmission Date: 20180509
  Serious: Yes (Disabling)
  Sender: FDA-Public Use
  Company Number: None

PATIENT
  Age: 51 Year
  Sex: Female
  Weight: 109.35 kg

DRUGS (4)
  1. NAPROXEN SODIUM. [Concomitant]
     Active Substance: NAPROXEN SODIUM
  2. CIPROFLOXACIN. [Suspect]
     Active Substance: CIPROFLOXACIN
     Indication: POST PROCEDURAL INFECTION
     Dosage: ?          QUANTITY:1 TABLET(S);?
     Route: 048
     Dates: start: 20180308, end: 20180308
  3. IBUPROFEN. [Suspect]
     Active Substance: IBUPROFEN
     Indication: PROCEDURAL PAIN
     Dosage: ?          QUANTITY:1 TABLET(S);?
     Route: 048
     Dates: start: 20180309, end: 20180309
  4. DAILY VITAMIN FIBER TABLETS [Concomitant]

REACTIONS (13)
  - Arthropathy [None]
  - Vitreous floaters [None]
  - Vomiting [None]
  - Muscle strain [None]
  - Aphasia [None]
  - Tremor [None]
  - Photophobia [None]
  - Burning sensation [None]
  - Depressed level of consciousness [None]
  - Hyperaesthesia [None]
  - Arthralgia [None]
  - Hypoaesthesia [None]
  - Toxicity to various agents [None]

NARRATIVE: CASE EVENT DATE: 20180309
